FAERS Safety Report 18541450 (Version 2)
Quarter: 2020Q4

REPORT INFORMATION
  Report Type: Spontaneous
  Country: FR (occurrence: FR)
  Receive Date: 20201124
  Receipt Date: 20201226
  Transmission Date: 20210114
  Serious: Yes (Other)
  Sender: FDA-Public Use
  Company Number: FR-MYLANLABS-2020M1093255

PATIENT
  Age: 49 Year
  Sex: Male
  Weight: 70 kg

DRUGS (1)
  1. MIRTAZAPINE MYLAN 15 MG FILMTABLETTEN [Suspect]
     Active Substance: MIRTAZAPINE
     Indication: PRODUCT USED FOR UNKNOWN INDICATION
     Dosage: 2.5 DOSAGE FORM, QD (TABLETS AND A HALF DAILY)
     Route: 048
     Dates: start: 202006

REACTIONS (10)
  - Arthralgia [Unknown]
  - Constipation [Unknown]
  - Gastrointestinal haemorrhage [Unknown]
  - Wrong technique in product usage process [Unknown]
  - Gastrointestinal pain [Unknown]
  - Gastrointestinal disorder [Unknown]
  - Restless legs syndrome [Unknown]
  - Fatigue [Unknown]
  - Colitis [Unknown]
  - Adverse reaction [Unknown]

NARRATIVE: CASE EVENT DATE: 202012
